FAERS Safety Report 10220345 (Version 2)
Quarter: 2014Q4

REPORT INFORMATION
  Report Type: Spontaneous
  Country: PT (occurrence: PT)
  Receive Date: 20140606
  Receipt Date: 20141201
  Transmission Date: 20150528
  Serious: Yes (Other)
  Sender: FDA-Public Use
  Company Number: PT-AMGEN-PRTSP2014041849

PATIENT
  Age: 31 Year
  Sex: Female

DRUGS (7)
  1. METHOTREXATE [Concomitant]
     Active Substance: METHOTREXATE
     Indication: JUVENILE IDIOPATHIC ARTHRITIS
     Dosage: 20 MG, WEEKLY
     Route: 048
  2. PROPRANOLOL [Concomitant]
     Active Substance: PROPRANOLOL\PROPRANOLOL HYDROCHLORIDE
     Dosage: 40 MG, 1X/DAY
     Route: 048
  3. DEFLAZACORT [Concomitant]
     Active Substance: DEFLAZACORT
     Indication: JUVENILE IDIOPATHIC ARTHRITIS
     Dosage: 6 MG, 1X/DAY
     Route: 048
  4. FOLIC ACID. [Concomitant]
     Active Substance: FOLIC ACID
     Indication: JUVENILE IDIOPATHIC ARTHRITIS
     Dosage: 20 MG, WEEKLY
     Route: 048
  5. DICLOFENAC [Concomitant]
     Active Substance: DICLOFENAC
     Indication: JUVENILE IDIOPATHIC ARTHRITIS
     Dosage: 100 MG, 1X/DAY
     Route: 048
  6. ENBREL [Suspect]
     Active Substance: ETANERCEPT
     Indication: JUVENILE IDIOPATHIC ARTHRITIS
     Dosage: 50 MG, WEEKLY
     Route: 058
     Dates: start: 20090320, end: 20130901
  7. OMEPRAZOL                          /00661201/ [Concomitant]
     Active Substance: OMEPRAZOLE
     Dosage: 20 MG, 1X/DAY
     Route: 048

REACTIONS (1)
  - Breast abscess [Recovered/Resolved]

NARRATIVE: CASE EVENT DATE: 20130901
